FAERS Safety Report 6044876-3 (Version None)
Quarter: 2009Q1

REPORT INFORMATION
  Report Type: 
  Country: None (occurrence: None)
  Receive Date: 20090121
  Receipt Date: 20090108
  Transmission Date: 20090719
  Serious: Yes (Death, Other)
  Sender: FDA-Public Use
  Company Number: JP-BAYER-JP-2004-031877

PATIENT
  Age: 36 Year
  Sex: Male
  Weight: 78 kg

DRUGS (5)
  1. BETAFERON [Suspect]
     Indication: RELAPSING-REMITTING MULTIPLE SCLEROSIS
     Dosage: UNIT DOSE: 8 MIU
     Route: 058
     Dates: start: 20030217, end: 20040903
  2. PREDONINE [Concomitant]
     Indication: RELAPSING-REMITTING MULTIPLE SCLEROSIS
     Dosage: UNIT DOSE: 5 MG
     Route: 048
     Dates: start: 20030115, end: 20040903
  3. ZANTAC [Concomitant]
     Indication: GASTRIC ULCER
     Dosage: UNIT DOSE: 150 MG
     Route: 048
     Dates: start: 20030115, end: 20040903
  4. MOBIC [Concomitant]
     Indication: BACK PAIN
     Dosage: UNIT DOSE: 10 MG
     Route: 048
     Dates: start: 20030225, end: 20040903
  5. BENET [Concomitant]
     Indication: OSTEOPOROSIS
     Dosage: UNIT DOSE: 2.5 MG
     Route: 048
     Dates: start: 20030917, end: 20040903

REACTIONS (7)
  - ATRIAL FIBRILLATION [None]
  - DEEP VEIN THROMBOSIS [None]
  - INJECTION SITE ERYTHEMA [None]
  - MULTIPLE SCLEROSIS RELAPSE [None]
  - PULMONARY EMBOLISM [None]
  - PYREXIA [None]
  - RESPIRATORY ARREST [None]
